FAERS Safety Report 25729826 (Version 1)
Quarter: 2025Q3

REPORT INFORMATION
  Report Type: Spontaneous
  Country: US (occurrence: US)
  Receive Date: 20250827
  Receipt Date: 20250827
  Transmission Date: 20251020
  Serious: No
  Sender: UCB
  Company Number: US-UCBSA-2025014159

PATIENT
  Age: 9 Year
  Sex: Female

DRUGS (4)
  1. FINTEPLA [Suspect]
     Active Substance: FENFLURAMINE
     Indication: Severe myoclonic epilepsy of infancy
  2. CANNABIDIOL [Suspect]
     Active Substance: CANNABIDIOL
     Indication: Severe myoclonic epilepsy of infancy
  3. CLOBAZAM [Suspect]
     Active Substance: CLOBAZAM
     Indication: Severe myoclonic epilepsy of infancy
  4. CLOBAZAM [Suspect]
     Active Substance: CLOBAZAM

REACTIONS (1)
  - Multiple-drug resistance [Unknown]
